FAERS Safety Report 10370975 (Version 2)
Quarter: 2014Q3

REPORT INFORMATION
  Report Type: Spontaneous
  Country: FR (occurrence: FR)
  Receive Date: 20140808
  Receipt Date: 20140822
  Transmission Date: 20150326
  Serious: Yes (Death, Other)
  Sender: FDA-Public Use
  Company Number: FR-B.I. PHARMACEUTICALS,INC./RIDGEFIELD-2014-BI-36632FF

PATIENT
  Age: 86 Year
  Sex: Male

DRUGS (9)
  1. SEROPLEX [Concomitant]
     Active Substance: ESCITALOPRAM OXALATE
     Dosage: 20 MG
     Route: 048
  2. DUPHALAC [Concomitant]
     Active Substance: LACTULOSE
     Dosage: 20 G
     Route: 048
  3. MIRTAZAPINE BLUEFISH [Concomitant]
     Dosage: 30 MG
     Route: 048
  4. LASILIX [Concomitant]
     Active Substance: FUROSEMIDE
     Dosage: 80 MG
     Route: 048
  5. IMOVANE [Concomitant]
     Active Substance: ZOPICLONE
     Dosage: 7.5 MG
     Route: 048
  6. PRADAXA [Suspect]
     Active Substance: DABIGATRAN ETEXILATE MESYLATE
     Indication: ATRIAL FIBRILLATION
     Dosage: 220 MG
     Route: 048
     Dates: start: 20140404, end: 20140710
  7. LEVOTHYROX [Concomitant]
     Active Substance: LEVOTHYROXINE
     Dosage: 75 MCG
     Route: 048
  8. SERESTA [Concomitant]
     Active Substance: OXAZEPAM
     Dosage: 30 MG
     Route: 048
  9. NEBIVOLOL EG [Concomitant]
     Active Substance: NEBIVOLOL HYDROCHLORIDE
     Dosage: 2.5 MG
     Route: 048

REACTIONS (2)
  - Melaena [Fatal]
  - Shock haemorrhagic [Fatal]

NARRATIVE: CASE EVENT DATE: 20140710
